FAERS Safety Report 11638264 (Version 2)
Quarter: 2015Q4

REPORT INFORMATION
  Report Type: Spontaneous
  Country: CZ (occurrence: CZ)
  Receive Date: 20151016
  Receipt Date: 20151019
  Transmission Date: 20160304
  Serious: Yes (Hospitalization)
  Sender: FDA-Public Use
  Company Number: CZ-EISAI MEDICAL RESEARCH-EC-2015-011218

PATIENT
  Age: 31 Year
  Sex: Male
  Weight: 150 kg

DRUGS (7)
  1. LACOSAMIDE [Concomitant]
     Active Substance: LACOSAMIDE
     Indication: EPILEPSY
     Dosage: 200 MG DAILY
     Route: 048
     Dates: start: 201306
  2. FYCOMPA [Suspect]
     Active Substance: PERAMPANEL
     Indication: EPILEPSY
     Dosage: UNKNOWN
     Route: 048
     Dates: start: 2015, end: 2015
  3. FYCOMPA [Suspect]
     Active Substance: PERAMPANEL
     Dosage: DOWN-TITRATED
     Route: 048
     Dates: start: 201508, end: 20150830
  4. FYCOMPA [Suspect]
     Active Substance: PERAMPANEL
     Route: 048
     Dates: start: 20150714, end: 201508
  5. FYCOMPA [Suspect]
     Active Substance: PERAMPANEL
     Dosage: DOSE TITRATED UP BY 2 MG EVERY 2 WEEKS
     Route: 048
     Dates: start: 2015, end: 20150713
  6. LEVETIRACETAM. [Concomitant]
     Active Substance: LEVETIRACETAM
     Indication: EPILEPSY
     Dosage: 1500 MG DAILY
     Route: 048
     Dates: start: 2010
  7. VALPROATE [Concomitant]
     Active Substance: VALPROATE SODIUM
     Indication: EPILEPSY
     Dosage: 1500 MG DAILY
     Route: 048
     Dates: start: 2000

REACTIONS (1)
  - Aggression [Recovering/Resolving]

NARRATIVE: CASE EVENT DATE: 20150819
